FAERS Safety Report 7078487-8 (Version None)
Quarter: 2010Q4

REPORT INFORMATION
  Report Type: 
  Country: None (occurrence: None)
  Receive Date: 20101102
  Receipt Date: 20101023
  Transmission Date: 20110411
  Serious: Yes (Other)
  Sender: FDA-Public Use
  Company Number: PHFR2010GB01947

PATIENT
  Sex: Male

DRUGS (6)
  1. CLOZARIL [Suspect]
     Indication: SCHIZOPHRENIA
     Dosage: 150 MG, QD
     Route: 048
     Dates: start: 20100727, end: 20100801
  2. CLOZARIL [Suspect]
     Dosage: 175 MG, QD
     Route: 048
  3. CLOZARIL [Suspect]
     Dosage: 200 MG, BID
     Route: 048
  4. PROCYCLIDINE HYDROCHLORIDE 2MG TAB [Concomitant]
     Indication: EXTRAPYRAMIDAL DISORDER
     Dosage: 5 MG, UNK
     Route: 048
  5. ATORVASTATIN [Concomitant]
     Indication: LIPIDS INCREASED
     Dosage: 20 MG, QD
     Route: 048
     Dates: start: 20100804
  6. SALBUTAMOL [Concomitant]
     Indication: ASTHMA
     Dosage: 2 DF, PRN

REACTIONS (4)
  - ALCOHOL POISONING [None]
  - BLOOD PRESSURE DECREASED [None]
  - HEART RATE INCREASED [None]
  - TACHYCARDIA [None]
